FAERS Safety Report 18895524 (Version 2)
Quarter: 2021Q1

REPORT INFORMATION
  Report Type: Not Available
  Country: US (occurrence: US)
  Receive Date: 20210216
  Receipt Date: 20210307
  Transmission Date: 20210420
  Serious: No
  Sender: FDA-Public Use
  Company Number: US-NEUROCRINE BIOSCIENCES INC.-2021NBI00501

PATIENT
  Age: 65 Year
  Sex: Female

DRUGS (2)
  1. INGREZZA [Suspect]
     Active Substance: VALBENAZINE
     Indication: TARDIVE DYSKINESIA
     Route: 048
     Dates: end: 20210105
  2. ZYPREXA [Concomitant]
     Active Substance: OLANZAPINE
     Indication: BIPOLAR DISORDER
     Route: 048
     Dates: start: 2020

REACTIONS (4)
  - Joint range of motion decreased [Recovering/Resolving]
  - Dysphagia [Recovering/Resolving]
  - Musculoskeletal stiffness [Recovering/Resolving]
  - Parkinsonism [Recovering/Resolving]
